FAERS Safety Report 8223403-6 (Version None)
Quarter: 2012Q1

REPORT INFORMATION
  Report Type: 
  Country: None (occurrence: None)
  Receive Date: 20120321
  Receipt Date: 20120314
  Transmission Date: 20120608
  Serious: Yes (Hospitalization)
  Sender: FDA-Public Use
  Company Number: US-CELGENEUS-163-21880-12031744

PATIENT
  Sex: Female
  Weight: 100.33 kg

DRUGS (2)
  1. REVLIMID [Suspect]
     Indication: MULTIPLE MYELOMA
     Dosage: 25 MILLIGRAM
     Route: 048
     Dates: start: 20120117
  2. VELCADE [Concomitant]
     Route: 065

REACTIONS (2)
  - ARTHROPATHY [None]
  - INFECTION [None]
